FAERS Safety Report 9416426 (Version 1)
Quarter: 2013Q3

REPORT INFORMATION
  Report Type: Spontaneous
  Country: US (occurrence: US)
  Receive Date: 20130724
  Receipt Date: 20130724
  Transmission Date: 20140515
  Serious: No
  Sender: FDA-Public Use
  Company Number: US-PFIZER INC-2013214869

PATIENT
  Age: 52 Year
  Sex: Female
  Weight: 78.46 kg

DRUGS (1)
  1. NEURONTIN [Suspect]
     Dosage: UNK
     Route: 048

REACTIONS (1)
  - Drug hypersensitivity [Not Recovered/Not Resolved]
